APPROVED DRUG PRODUCT: METRONIDAZOLE
Active Ingredient: METRONIDAZOLE
Strength: 250MG
Dosage Form/Route: TABLET;ORAL
Application: A203458 | Product #001 | TE Code: AB
Applicant: UNICHEM LABORATORIES LTD
Approved: Jan 22, 2014 | RLD: No | RS: No | Type: RX